FAERS Safety Report 6695899-2 (Version None)
Quarter: 2010Q2

REPORT INFORMATION
  Report Type: 
  Country: None (occurrence: None)
  Receive Date: 20100426
  Receipt Date: 20100122
  Transmission Date: 20101027
  Serious: No
  Sender: FDA-Public Use
  Company Number: A0832283A

PATIENT
  Age: 48 Year
  Sex: Female

DRUGS (7)
  1. ZOFRAN [Suspect]
     Indication: PROPHYLAXIS OF NAUSEA AND VOMITING
     Route: 048
     Dates: start: 20000101, end: 20000801
  2. TYKERB [Suspect]
     Indication: BREAST CANCER
     Dosage: 5TAB PER DAY
     Route: 048
     Dates: start: 20091129
  3. ONDANSETRON [Suspect]
     Indication: PROPHYLAXIS OF NAUSEA AND VOMITING
     Dosage: 8MG AS REQUIRED
     Route: 048
     Dates: start: 20091130
  4. XELODA [Concomitant]
  5. OMEPRAZOLE [Concomitant]
  6. STEROID [Concomitant]
  7. CHEMOTHERAPY [Concomitant]
     Dates: start: 20000101

REACTIONS (5)
  - CONSTIPATION [None]
  - DIARRHOEA [None]
  - NAUSEA [None]
  - URINARY TRACT INFECTION [None]
  - VOMITING [None]
